FAERS Safety Report 8730358 (Version 5)
Quarter: 2012Q4

REPORT INFORMATION
  Report Type: Report from Study
  Country: CO (occurrence: CO)
  Receive Date: 20120817
  Receipt Date: 20121129
  Transmission Date: 20130627
  Serious: Yes (Death, Hospitalization)
  Sender: FDA-Public Use
  Company Number: CO-ROCHE-1095268

PATIENT
  Age: 47 Year
  Sex: Female
  Weight: 59.8 kg

DRUGS (10)
  1. TOCILIZUMAB [Suspect]
     Indication: RHEUMATOID ARTHRITIS
     Dosage: date of last dose prior to sae : 13/Jun/2012
     Route: 058
     Dates: start: 20120307
  2. TOCILIZUMAB [Suspect]
     Indication: RHEUMATOID ARTHRITIS
     Dosage: date of most recent dose prior to sae:22/Feb/2012
     Route: 058
     Dates: start: 20110921
  3. METHOTREXATE [Concomitant]
     Indication: RHEUMATOID ARTHRITIS
     Route: 048
     Dates: start: 20110329, end: 20120725
  4. CHLOROQUINE [Concomitant]
     Indication: RHEUMATOID ARTHRITIS
     Route: 048
     Dates: start: 20110320, end: 20120725
  5. PREDNISOLONE [Concomitant]
     Indication: RHEUMATOID ARTHRITIS
     Route: 048
     Dates: start: 201006, end: 20120725
  6. NAPROXEN [Concomitant]
     Indication: RHEUMATOID ARTHRITIS
     Route: 048
     Dates: start: 20110329, end: 20120708
  7. FOLIC ACID [Concomitant]
     Route: 048
     Dates: start: 20110329, end: 20120725
  8. OMEPRAZOLE [Concomitant]
     Indication: PROPHYLAXIS AGAINST GASTROINTESTINAL ULCER
     Route: 048
     Dates: start: 20110329, end: 20120725
  9. DICLOFENAC [Concomitant]
     Indication: RHEUMATOID ARTHRITIS
     Route: 048
     Dates: start: 201006, end: 20110328
  10. ACETAMINOPHEN [Concomitant]
     Route: 048
     Dates: start: 20120626, end: 20120630

REACTIONS (5)
  - Pyrexia [Fatal]
  - Convulsion [None]
  - Pneumonia [None]
  - Urinary tract infection [None]
  - Respiratory failure [None]
